FAERS Safety Report 9781069 (Version 1)
Quarter: 2013Q4

REPORT INFORMATION
  Report Type: Spontaneous
  Country: GB (occurrence: GB)
  Receive Date: 20131224
  Receipt Date: 20131224
  Transmission Date: 20140711
  Serious: Yes (Other)
  Sender: FDA-Public Use
  Company Number: PHHY2013GB147173

PATIENT
  Sex: Female
  Weight: 95.25 kg

DRUGS (15)
  1. METRONIDAZOLE [Suspect]
     Indication: TOOTH ABSCESS
     Dosage: 200 MG, TID
     Route: 048
     Dates: start: 20121218, end: 20121221
  2. TRIMETHOPRIM [Suspect]
     Indication: URINARY TRACT INFECTION
     Dosage: 200 MG, BID
     Route: 048
     Dates: end: 20131118
  3. COLECALCIFEROL [Concomitant]
  4. FELODIPINE [Concomitant]
  5. INDAPAMIDE [Concomitant]
  6. LANSOPRAZOLE [Concomitant]
  7. LEVOTHYROXINE SODIUM [Concomitant]
  8. LOSARTAN [Concomitant]
  9. FISH OIL CONCENTRATE [Concomitant]
  10. VITAMIN E [Concomitant]
  11. PROPOLIS [Concomitant]
  12. VITAMIIN C [Concomitant]
  13. GLUCOSAMINE COMPLEX WITH CHONDROITIN [Concomitant]
  14. MSM [Concomitant]
  15. NATRIUM MURIATICUM [Concomitant]

REACTIONS (10)
  - Disorientation [Recovered/Resolved]
  - Vulval disorder [Recovering/Resolving]
  - Wound secretion [Recovering/Resolving]
  - Hypersensitivity [Unknown]
  - Burning sensation [Recovering/Resolving]
  - Skin exfoliation [Recovering/Resolving]
  - Oral mucosal exfoliation [Recovering/Resolving]
  - Stomatitis [Recovering/Resolving]
  - Erythema [Recovering/Resolving]
  - Swelling face [Recovered/Resolved]
